FAERS Safety Report 19172782 (Version 2)
Quarter: 2021Q2

REPORT INFORMATION
  Report Type: Spontaneous
  Country: US (occurrence: US)
  Receive Date: 20210423
  Receipt Date: 20210521
  Transmission Date: 20210717
  Serious: Yes (Other)
  Sender: FDA-Public Use
  Company Number: US-SAREPTA THERAPEUTICS INC.-SRP2021-001400

PATIENT
  Age: 20 Year
  Sex: Male
  Weight: 81.63 kg

DRUGS (9)
  1. VYONDYS 53 [Suspect]
     Active Substance: GOLODIRSEN
     Indication: DUCHENNE MUSCULAR DYSTROPHY
     Dosage: 2200 MG, WEEKLY
     Route: 042
     Dates: start: 20210120, end: 20210512
  2. PREDNISONE. [Concomitant]
     Active Substance: PREDNISONE
     Indication: STEROID THERAPY
     Dosage: 20 MILLIGRAM, QD
     Route: 048
  3. SIMETHICONE (DIMETHICONE) [Concomitant]
     Active Substance: DIMETHICONE
     Indication: FLATULENCE
     Dosage: 125 MILLIGRAM, PRN
     Dates: start: 20200903
  4. VITAMIN D NOS [Concomitant]
     Active Substance: VITAMIN D NOS
     Indication: VITAMIN SUPPLEMENTATION
     Dosage: 25 MICROGRAM, QD
     Dates: start: 20210114
  5. DIAZEPAM. [Concomitant]
     Active Substance: DIAZEPAM
     Indication: SEIZURE PROPHYLAXIS
     Dosage: 12.5 MILLIGRAM, PRN
     Route: 048
  6. LEVETIRACETAM. [Concomitant]
     Active Substance: LEVETIRACETAM
     Indication: SEIZURE PROPHYLAXIS
     Dosage: 1500 MILLIGRAM, BID
     Route: 048
     Dates: start: 20210111
  7. CALCIUM CARBONATE. [Concomitant]
     Active Substance: CALCIUM CARBONATE
     Indication: SUPPLEMENTATION THERAPY
     Dosage: 625 MILLIGRAM, QD
     Dates: start: 20200220
  8. VIMPAT [Concomitant]
     Active Substance: LACOSAMIDE
     Indication: SEIZURE PROPHYLAXIS
     Dosage: 200 MILLIGRAM, BID
     Route: 048
     Dates: start: 20210102
  9. HYDROXYZINE PAMOATE. [Concomitant]
     Active Substance: HYDROXYZINE PAMOATE
     Indication: ANTIALLERGIC THERAPY
     Dosage: 25 MILLIGRAM, PRN
     Dates: start: 20201125

REACTIONS (1)
  - Femur fracture [Recovered/Resolved]

NARRATIVE: CASE EVENT DATE: 20210412
